FAERS Safety Report 18349060 (Version 1)
Quarter: 2020Q4

REPORT INFORMATION
  Report Type: Spontaneous
  Country: US (occurrence: US)
  Receive Date: 20201005
  Receipt Date: 20201005
  Transmission Date: 20210114
  Serious: Yes (Death, Hospitalization)
  Sender: FDA-Public Use
  Company Number: None

PATIENT
  Age: 7 Year
  Sex: Male
  Weight: 22.5 kg

DRUGS (9)
  1. SEPTRA [Concomitant]
     Active Substance: SULFAMETHOXAZOLE\TRIMETHOPRIM
  2. VINCRISTINE SULFATE. [Suspect]
     Active Substance: VINCRISTINE SULFATE
     Dates: end: 20200924
  3. FAMOTIDINE. [Concomitant]
     Active Substance: FAMOTIDINE
  4. DEXAMETHASONE. [Suspect]
     Active Substance: DEXAMETHASONE
     Dates: end: 20200924
  5. GABAPENTIN. [Concomitant]
     Active Substance: GABAPENTIN
  6. LAX-A-DAY [Concomitant]
     Active Substance: POLYETHYLENE GLYCOL 3350
  7. VITAMIN D [Concomitant]
     Active Substance: VITAMIN D NOS
  8. ONCASPAR [Suspect]
     Active Substance: PEGASPARGASE
     Dates: end: 20200914
  9. ONDANSETRON [Concomitant]
     Active Substance: ONDANSETRON

REACTIONS (5)
  - Abdominal pain [None]
  - Dyspnoea [None]
  - Insomnia [None]
  - Cardiac arrest [None]
  - Nausea [None]

NARRATIVE: CASE EVENT DATE: 20190926
